FAERS Safety Report 7650585-7 (Version None)
Quarter: 2011Q3

REPORT INFORMATION
  Report Type: 
  Country: None (occurrence: None)
  Receive Date: 20110802
  Receipt Date: 20110722
  Transmission Date: 20111222
  Serious: Yes (Hospitalization)
  Sender: FDA-Public Use
  Company Number: US-BAXTER-2011BH023985

PATIENT
  Age: 28 Year
  Sex: Female
  Weight: 59 kg

DRUGS (19)
  1. LOVENOX [Concomitant]
     Indication: PRODUCT USED FOR UNKNOWN INDICATION
     Route: 065
  2. GAMMAGARD LIQUID [Suspect]
     Indication: SYSTEMIC LUPUS ERYTHEMATOSUS
     Route: 042
     Dates: start: 20110614
  3. GAMMAGARD LIQUID [Suspect]
     Route: 042
     Dates: start: 20110301
  4. ASPIRIN [Concomitant]
     Indication: PRODUCT USED FOR UNKNOWN INDICATION
     Route: 065
  5. GAMMAGARD LIQUID [Suspect]
     Indication: ANAEMIA HAEMOLYTIC AUTOIMMUNE
     Route: 042
     Dates: start: 20110614
  6. GAMMAGARD LIQUID [Suspect]
     Route: 042
     Dates: start: 20110301
  7. BENADRYL [Concomitant]
     Route: 065
     Dates: start: 20110615, end: 20110615
  8. GAMMAGARD LIQUID [Suspect]
     Indication: OFF LABEL USE
     Route: 042
     Dates: start: 20110614
  9. METRONIDAZOLE [Concomitant]
     Indication: PRODUCT USED FOR UNKNOWN INDICATION
     Route: 065
  10. MICRONEFRIN [Concomitant]
     Indication: PRODUCT USED FOR UNKNOWN INDICATION
     Route: 055
  11. GAMMAGARD LIQUID [Suspect]
     Route: 042
     Dates: start: 20110615
  12. GAMMAGARD LIQUID [Suspect]
     Route: 042
     Dates: start: 20110615
  13. GAMMAGARD LIQUID [Suspect]
     Route: 042
     Dates: start: 20110301
  14. TYLENOL-500 [Concomitant]
     Indication: PREMEDICATION
     Route: 048
     Dates: start: 20110614, end: 20110614
  15. TYLENOL-500 [Concomitant]
     Route: 048
     Dates: start: 20110615, end: 20110615
  16. PLATINOL [Concomitant]
     Indication: PRODUCT USED FOR UNKNOWN INDICATION
     Route: 065
  17. GAMMAGARD LIQUID [Suspect]
     Route: 042
     Dates: start: 20110615
  18. BENADRYL [Concomitant]
     Indication: PREMEDICATION
     Route: 065
     Dates: start: 20110614, end: 20110614
  19. PREDNISOLONE [Concomitant]
     Indication: PRODUCT USED FOR UNKNOWN INDICATION
     Route: 065

REACTIONS (13)
  - CATHETER SITE INFECTION [None]
  - SEPTIC SHOCK [None]
  - RESPIRATORY FAILURE [None]
  - NAUSEA [None]
  - HEADACHE [None]
  - LOSS OF CONSCIOUSNESS [None]
  - WHITE BLOOD CELL COUNT INCREASED [None]
  - MENINGITIS ASEPTIC [None]
  - PHOTOPHOBIA [None]
  - ASTHENIA [None]
  - VOMITING [None]
  - FATIGUE [None]
  - MOBILITY DECREASED [None]
